FAERS Safety Report 21655249 (Version 1)
Quarter: 2022Q4

REPORT INFORMATION
  Report Type: Spontaneous
  Country: US (occurrence: US)
  Receive Date: 20221129
  Receipt Date: 20221129
  Transmission Date: 20230112
  Serious: No
  Sender: FDA-Public Use
  Company Number: US-ORGANON-O2211USA001862

PATIENT
  Sex: Female

DRUGS (3)
  1. PREGNYL [Suspect]
     Active Substance: CHORIOGONADOTROPIN ALFA
     Indication: Infertility female
     Dosage: UNK UNK, ONCE FOR ONE DOSE
     Route: 030
     Dates: start: 20220928
  2. STERILE WATER [Suspect]
     Active Substance: WATER
     Dosage: UNK
     Route: 030
  3. FEMARA [Concomitant]
     Active Substance: LETROZOLE

REACTIONS (1)
  - Poor quality sleep [Unknown]

NARRATIVE: CASE EVENT DATE: 20220101
